FAERS Safety Report 5344041-9 (Version None)
Quarter: 2007Q2

REPORT INFORMATION
  Report Type: 
  Country: None (occurrence: None)
  Receive Date: 20070604
  Receipt Date: 20070525
  Transmission Date: 20071010
  Serious: Yes (Hospitalization)
  Sender: FDA-Public Use
  Company Number: A0652222A

PATIENT
  Age: 70 Year
  Sex: Male
  Weight: 86 kg

DRUGS (7)
  1. PAZOPANIB [Suspect]
     Indication: MALIGNANT GLIOMA
     Dosage: 200MG PER DAY
     Route: 048
     Dates: start: 20070418, end: 20070515
  2. LAPATINIB [Suspect]
     Indication: MALIGNANT GLIOMA
     Dosage: 1500MG PER DAY
     Route: 048
     Dates: start: 20070418, end: 20070515
  3. DECADRON [Concomitant]
     Dosage: 4MG AS REQUIRED
     Route: 048
  4. FLOMAX [Concomitant]
  5. LIPITOR [Concomitant]
  6. VALTREX [Concomitant]
  7. DILANTIN [Concomitant]

REACTIONS (2)
  - HYPERGLYCAEMIA [None]
  - TRANSAMINASES INCREASED [None]
